FAERS Safety Report 23764572 (Version 1)
Quarter: 2024Q2

REPORT INFORMATION
  Report Type: Spontaneous
  Country: FR (occurrence: FR)
  Receive Date: 20240420
  Receipt Date: 20240420
  Transmission Date: 20240716
  Serious: Yes (Other)
  Sender: FDA-Public Use
  Company Number: FR-CELLTRION INC.-2020FR035341

PATIENT

DRUGS (4)
  1. INFLIXIMAB [Suspect]
     Active Substance: INFLIXIMAB
     Indication: Crohn^s disease
     Dosage: UNK
  2. ADALIMUMAB [Suspect]
     Active Substance: ADALIMUMAB\ISOPROPYL ALCOHOL
     Indication: Crohn^s disease
     Dosage: UNK
  3. MERCAPTOPURINE [Suspect]
     Active Substance: MERCAPTOPURINE
     Indication: Crohn^s disease
     Dosage: UNK
     Route: 065
  4. IMATINIB [Suspect]
     Active Substance: IMATINIB
     Indication: Crohn^s disease
     Dosage: 400 MG, PER DAY (340 MG/M2/DAY)
     Route: 048

REACTIONS (5)
  - Crohn^s disease [Unknown]
  - Drug ineffective [Unknown]
  - Therapeutic response unexpected [Unknown]
  - Off label use [Unknown]
  - Intentional product misuse [Unknown]
